FAERS Safety Report 6446856-2 (Version None)
Quarter: 2009Q4

REPORT INFORMATION
  Report Type: 
  Country: None (occurrence: None)
  Receive Date: 20091119
  Receipt Date: 20091109
  Transmission Date: 20100525
  Serious: Yes (Hospitalization, Other)
  Sender: FDA-Public Use
  Company Number: PT-BRISTOL-MYERS SQUIBB COMPANY-14830384

PATIENT
  Age: 34 Year
  Sex: Male

DRUGS (4)
  1. EFAVIRENZ [Suspect]
     Indication: ANTIRETROVIRAL THERAPY
     Dates: start: 20030201, end: 20051101
  2. STAVUDINE [Suspect]
     Indication: ANTIRETROVIRAL THERAPY
     Dates: start: 19980101
  3. TENOFOVIR DISOPROXIL FUMARATE [Suspect]
     Indication: ANTIRETROVIRAL THERAPY
     Dosage: MAY02, FEB-03 CHANGED
     Dates: start: 20020501
  4. LOPINAVIR AND RITONAVIR [Suspect]
     Indication: ANTIRETROVIRAL THERAPY

REACTIONS (12)
  - ABDOMINAL DISTENSION [None]
  - CHEST PAIN [None]
  - CORONARY ARTERY DISEASE [None]
  - DRUG INEFFECTIVE [None]
  - DYSLIPIDAEMIA [None]
  - HYPERHIDROSIS [None]
  - LIPIDS ABNORMAL [None]
  - LIPODYSTROPHY ACQUIRED [None]
  - MYOCARDIAL INFARCTION [None]
  - PALPITATIONS [None]
  - PATHOGEN RESISTANCE [None]
  - VIRAL LOAD INCREASED [None]
